FAERS Safety Report 7269983-9 (Version None)
Quarter: 2011Q1

REPORT INFORMATION
  Report Type: 
  Country: None (occurrence: None)
  Receive Date: 20110202
  Receipt Date: 20110119
  Transmission Date: 20110831
  Serious: Yes (Other)
  Sender: FDA-Public Use
  Company Number: JP-ACTELION-A-CH2011-44069

PATIENT
  Age: 70 Year
  Sex: Female

DRUGS (4)
  1. TRACLEER [Suspect]
     Indication: PULMONARY ARTERIAL HYPERTENSION
     Dosage: UNK , UNK
     Route: 048
  2. BERAPROST [Interacting]
  3. SILDENAFIL [Interacting]
  4. TRACLEER [Interacting]
     Dosage: UNK , UNK
     Route: 048

REACTIONS (8)
  - PRURITUS [None]
  - INTERSTITIAL LUNG DISEASE [None]
  - CONDITION AGGRAVATED [None]
  - DRUG INTERACTION [None]
  - RASH [None]
  - PYREXIA [None]
  - LYMPHOCYTE COUNT DECREASED [None]
  - C-REACTIVE PROTEIN INCREASED [None]
